FAERS Safety Report 5985905-2 (Version None)
Quarter: 2008Q4

REPORT INFORMATION
  Report Type: 
  Country: None (occurrence: None)
  Receive Date: 20081208
  Receipt Date: 20081208
  Transmission Date: 20090506
  Serious: Yes (Hospitalization)
  Sender: FDA-Public Use
  Company Number: None

PATIENT
  Sex: Male
  Weight: 71.1694 kg

DRUGS (2)
  1. ERLOTINIB 150MG DAILY FOR 21 DAYS [Suspect]
     Indication: NON-SMALL CELL LUNG CANCER
  2. BEVACIZUMAB 15MG/KG IV EVERY 21 DAYS [Suspect]

REACTIONS (3)
  - BODY TEMPERATURE INCREASED [None]
  - DEHYDRATION [None]
  - DIARRHOEA [None]
